FAERS Safety Report 17143492 (Version 1)
Quarter: 2019Q4

REPORT INFORMATION
  Report Type: Spontaneous
  Country: US (occurrence: US)
  Receive Date: 20191211
  Receipt Date: 20191211
  Transmission Date: 20200122
  Serious: Yes (Other)
  Sender: FDA-Public Use
  Company Number: US-AMERICAN REGENT INC-20190634

PATIENT
  Sex: Female
  Weight: 100 kg

DRUGS (42)
  1. VENOFER [Suspect]
     Active Substance: IRON SUCROSE
     Indication: PRODUCT USED FOR UNKNOWN INDICATION
     Dosage: 100 MG
     Route: 042
     Dates: start: 20151106
  2. VENOFER [Suspect]
     Active Substance: IRON SUCROSE
     Dosage: 100 MG
     Route: 042
     Dates: start: 20151211
  3. VENOFER [Suspect]
     Active Substance: IRON SUCROSE
     Dosage: 100 MG
     Route: 042
     Dates: start: 20151214
  4. MICERA [Suspect]
     Active Substance: METHOXY POLYETHYLENE GLYCOL-EPOETIN BETA
     Dosage: 150 MCG
     Route: 065
     Dates: start: 20151102
  5. MICERA [Suspect]
     Active Substance: METHOXY POLYETHYLENE GLYCOL-EPOETIN BETA
     Dosage: 100 MCG
     Route: 065
     Dates: start: 20151214
  6. ZANTAC [Concomitant]
     Active Substance: RANITIDINE HYDROCHLORIDE
     Indication: DYSPEPSIA
     Dosage: 150 MG (150 MG, 1 IN 1 D)
     Route: 048
  7. HYDRALAZINE [Concomitant]
     Active Substance: HYDRALAZINE HYDROCHLORIDE
     Indication: PRODUCT USED FOR UNKNOWN INDICATION
     Dosage: 150 MG (50 MG, 3 IN 1 D)
     Route: 048
  8. VENOFER [Suspect]
     Active Substance: IRON SUCROSE
     Dosage: 100 MG
     Route: 042
     Dates: start: 20151209
  9. EPOGEN [Concomitant]
     Active Substance: ERYTHROPOIETIN
     Dosage: 10000 IU
     Route: 065
     Dates: start: 20151028
  10. SERTRALINE [Concomitant]
     Active Substance: SERTRALINE HYDROCHLORIDE
     Indication: PRODUCT USED FOR UNKNOWN INDICATION
     Dosage: 100 MG (100 MG, EVERY NIGHT)
     Route: 048
  11. VITAMIN D3 [Concomitant]
     Active Substance: CHOLECALCIFEROL
     Indication: PRODUCT USED FOR UNKNOWN INDICATION
     Dosage: 2000 IU (2000 IU 1 IN 1 D)
     Route: 048
  12. VERAPAMIL [Concomitant]
     Active Substance: VERAPAMIL HYDROCHLORIDE
     Indication: PRODUCT USED FOR UNKNOWN INDICATION
     Dosage: 300 MG (300 MG, EVERY MORNING)
     Route: 048
  13. EPOGEN [Concomitant]
     Active Substance: ERYTHROPOIETIN
     Indication: PRODUCT USED FOR UNKNOWN INDICATION
     Dosage: 10000 IU
     Route: 065
     Dates: start: 20151019
  14. LEVEMIR [Concomitant]
     Active Substance: INSULIN DETEMIR
     Indication: PRODUCT USED FOR UNKNOWN INDICATION
     Dosage: 8 IU (8 IU, EVERY NIGHT)
     Route: 058
  15. TOPAMAX [Concomitant]
     Active Substance: TOPIRAMATE
     Indication: PRODUCT USED FOR UNKNOWN INDICATION
     Dosage: 100 MG (100 MG, EVERY NIGHT)
     Route: 048
  16. EPOGEN [Concomitant]
     Active Substance: ERYTHROPOIETIN
     Dosage: 10000 IU
     Route: 065
     Dates: start: 20151021
  17. EPOGEN [Concomitant]
     Active Substance: ERYTHROPOIETIN
     Dosage: 10000 IU
     Route: 065
     Dates: start: 20151030
  18. DIALYVITE [Concomitant]
     Active Substance: ASCORBIC ACID\BIOTIN\CALCIUM PANTOTHENATE\COBALAMIN\FOLIC ACID\NIACINAMIDE\PYRIDOXINE HYDROCHLORIDE\RIBOFLAVIN\THIAMINE MONONITRATE
     Indication: PRODUCT USED FOR UNKNOWN INDICATION
     Dosage: 800 MG (800 MG, 1 IN 1 D)
     Route: 048
  19. METOPROLOL TARTRATE. [Concomitant]
     Active Substance: METOPROLOL TARTRATE
     Indication: PRODUCT USED FOR UNKNOWN INDICATION
     Dosage: 100MG(50 MG,MORNING AND NIGHT)
     Route: 048
  20. PERCOCET [Concomitant]
     Active Substance: ACETAMINOPHEN\OXYCODONE HYDROCHLORIDE
     Indication: PRODUCT USED FOR UNKNOWN INDICATION
     Dosage: 5-325 MG (1 DF AS REQUIRED)
     Route: 048
  21. PROMETHAZINE [Concomitant]
     Active Substance: PROMETHAZINE HYDROCHLORIDE
     Indication: PRODUCT USED FOR UNKNOWN INDICATION
     Dosage: 25 MG, POST DIALYSIS
     Route: 048
  22. RITUXAN [Concomitant]
     Active Substance: RITUXIMAB
     Indication: PRODUCT USED FOR UNKNOWN INDICATION
     Dosage: 10 MG/ML, 1 IN 1 WK
     Route: 042
     Dates: end: 20190211
  23. EPOGEN [Concomitant]
     Active Substance: ERYTHROPOIETIN
     Dosage: 10000 IU
     Route: 065
     Dates: start: 20151023
  24. CALCITRIOL. [Concomitant]
     Active Substance: CALCITRIOL
     Indication: PRODUCT USED FOR UNKNOWN INDICATION
     Dosage: 0.25 MCG (0.25 MCG, 1 IN 1 D)
     Route: 048
  25. HYDROXYCHLOROQUINE [Concomitant]
     Active Substance: HYDROXYCHLOROQUINE
     Indication: PRODUCT USED FOR UNKNOWN INDICATION
     Dosage: 400 MG (400 MG, EVERY MORNING)
     Route: 048
  26. VENOFER [Suspect]
     Active Substance: IRON SUCROSE
     Dosage: 100 MG
     Route: 042
     Dates: start: 20151217
  27. VENOFER [Suspect]
     Active Substance: IRON SUCROSE
     Dosage: 100 MG
     Route: 042
     Dates: start: 20151218
  28. MICERA [Suspect]
     Active Substance: METHOXY POLYETHYLENE GLYCOL-EPOETIN BETA
     Indication: PRODUCT USED FOR UNKNOWN INDICATION
     Dosage: 100 MCG
     Route: 065
     Dates: start: 20150921
  29. MICERA [Suspect]
     Active Substance: METHOXY POLYETHYLENE GLYCOL-EPOETIN BETA
     Dosage: 100 MCG
     Route: 065
     Dates: start: 20151005
  30. EPOGEN [Concomitant]
     Active Substance: ERYTHROPOIETIN
     Dosage: 10000 IU
     Route: 065
     Dates: start: 20151029
  31. LEVOCETIRIZINE [Concomitant]
     Active Substance: LEVOCETIRIZINE
     Indication: PRODUCT USED FOR UNKNOWN INDICATION
     Dosage: 5 MG (5 MG, EVERY NIGHT)
     Route: 048
  32. RELPAX [Concomitant]
     Active Substance: ELETRIPTAN HYDROBROMIDE
     Indication: PRODUCT USED FOR UNKNOWN INDICATION
     Dosage: 20 MG (20 MG, 1 IN 1 D)
     Route: 048
  33. MICERA [Suspect]
     Active Substance: METHOXY POLYETHYLENE GLYCOL-EPOETIN BETA
     Dosage: 100 MCG
     Route: 065
     Dates: start: 20151118
  34. MELATONIN [Concomitant]
     Active Substance: MELATONIN
     Dosage: 10 MG, AT BEDTIME AT NIGHT
     Route: 048
  35. ELIQUIS [Concomitant]
     Active Substance: APIXABAN
     Indication: PRODUCT USED FOR UNKNOWN INDICATION
     Dosage: 2.5 MG, 2  IN 1 D
     Route: 048
  36. HUMALOG [Concomitant]
     Active Substance: INSULIN LISPRO
     Indication: PRODUCT USED FOR UNKNOWN INDICATION
     Dosage: 5 IU WITH BIGGEST MEAL
     Route: 058
  37. MICERA [Suspect]
     Active Substance: METHOXY POLYETHYLENE GLYCOL-EPOETIN BETA
     Dosage: 100 MCG
     Route: 065
     Dates: start: 20151130
  38. MICERA [Suspect]
     Active Substance: METHOXY POLYETHYLENE GLYCOL-EPOETIN BETA
     Dosage: 200 MCG, 2 IN 1 M 19 MONTHS
     Route: 058
     Dates: start: 20170606, end: 20181228
  39. ONDANSETRON HCL [Concomitant]
     Active Substance: ONDANSETRON HYDROCHLORIDE
     Indication: NAUSEA
     Dosage: 4 MG AS REQUIRED
     Route: 048
  40. XANAX [Concomitant]
     Active Substance: ALPRAZOLAM
     Indication: ANXIETY
     Dosage: 0.75 MG (0.25 MG, 3 IN 1 D)
     Route: 048
  41. FOSRENOL [Concomitant]
     Active Substance: LANTHANUM CARBONATE
     Indication: PRODUCT USED FOR UNKNOWN INDICATION
     Dosage: 3000MG(1 TAB AFTER EACH MEAL)
     Route: 048
  42. ZYRTEC [Concomitant]
     Active Substance: CETIRIZINE HYDROCHLORIDE
     Indication: PRODUCT USED FOR UNKNOWN INDICATION
     Dosage: 40 MG (10 MG, 4 IN 1 D)
     Route: 048

REACTIONS (1)
  - Aplasia pure red cell [Unknown]

NARRATIVE: CASE EVENT DATE: 2019
